FAERS Safety Report 11054679 (Version 1)
Quarter: 2015Q2

REPORT INFORMATION
  Report Type: Spontaneous
  Country: US (occurrence: US)
  Receive Date: 20150422
  Receipt Date: 20150422
  Transmission Date: 20150821
  Serious: Yes (Other)
  Sender: FDA-Public Use
  Company Number: US-SUN PHARMACEUTICAL INDUSTRIES LTD-2015SUN01021

PATIENT
  Age: 69 Year
  Sex: Female

DRUGS (4)
  1. LIPOSOMAL CYTARABINE [Interacting]
     Active Substance: CYTARABINE
     Indication: METASTASES TO CENTRAL NERVOUS SYSTEM
  2. LIPOSOMAL CYTARABINE [Interacting]
     Active Substance: CYTARABINE
     Indication: LUNG ADENOCARCINOMA
     Dosage: 25 MG, 1DOSE/2 WEEKS, INTRAVENTRICULAR
     Route: 050
  3. TOPOTECAN [Suspect]
     Active Substance: TOPOTECAN\TOPOTECAN HYDROCHLORIDE
     Indication: LUNG ADENOCARCINOMA
     Dosage: 0.4 MG, TWICE WEEKLY, ROUTE: INTRAVENTRICULAR
     Route: 050
  4. TOPOTECAN [Interacting]
     Active Substance: TOPOTECAN\TOPOTECAN HYDROCHLORIDE
     Indication: METASTASES TO CENTRAL NERVOUS SYSTEM

REACTIONS (5)
  - Cerebral cyst [Recovered/Resolved]
  - Seizure [Recovered/Resolved]
  - Headache [Recovered/Resolved]
  - Cognitive disorder [Recovered/Resolved]
  - Drug interaction [Recovered/Resolved]

NARRATIVE: CASE EVENT DATE: 201401
